FAERS Safety Report 18531928 (Version 1)
Quarter: 2020Q4

REPORT INFORMATION
  Report Type: Spontaneous
  Country: FR (occurrence: FR)
  Receive Date: 20201123
  Receipt Date: 20201123
  Transmission Date: 20210114
  Serious: Yes (Hospitalization)
  Sender: FDA-Public Use
  Company Number: FR-TEVA-2020-FR-1851596

PATIENT
  Age: 67 Year
  Sex: Female
  Weight: 62 kg

DRUGS (6)
  1. ESTREVA [Suspect]
     Active Substance: ESTRADIOL
     Indication: MENOPAUSAL SYMPTOMS
     Dosage: 1 MILLIGRAM DAILY;
     Route: 003
     Dates: start: 2003, end: 2008
  2. CRESTOR [Concomitant]
     Active Substance: ROSUVASTATIN CALCIUM
  3. ESTREVA [Suspect]
     Active Substance: ESTRADIOL
     Dosage: .5 MILLIGRAM DAILY;
     Route: 003
     Dates: start: 2008, end: 2010
  4. LUTERAN 5 MG, COMPRIME [Suspect]
     Active Substance: CHLORMADINONE ACETATE
     Route: 048
     Dates: start: 2003, end: 2008
  5. LUTERAN 5 MG, COMPRIME [Suspect]
     Active Substance: CHLORMADINONE ACETATE
     Indication: MENOPAUSAL SYMPTOMS
     Dosage: 5 MILLIGRAM DAILY;
     Route: 048
     Dates: start: 199811, end: 2003
  6. LUTERAN 5 MG, COMPRIME [Suspect]
     Active Substance: CHLORMADINONE ACETATE
     Route: 048
     Dates: start: 2008, end: 2010

REACTIONS (2)
  - Balance disorder [Recovered/Resolved with Sequelae]
  - Meningioma [Recovered/Resolved with Sequelae]

NARRATIVE: CASE EVENT DATE: 201606
